FAERS Safety Report 15876709 (Version 1)
Quarter: 2019Q1

REPORT INFORMATION
  Report Type: Spontaneous
  Country: GB (occurrence: FR)
  Receive Date: 20190127
  Receipt Date: 20190127
  Transmission Date: 20190417
  Serious: Yes (Life-Threatening)
  Sender: FDA-Public Use
  Company Number: FR-FRESENIUS KABI-FK201900861

PATIENT
  Age: 70 Year
  Sex: Female

DRUGS (2)
  1. PROPOFOL 1% FRESENIUS [Suspect]
     Active Substance: PROPOFOL
     Indication: GENERAL ANAESTHESIA
     Route: 040
     Dates: start: 20181221, end: 20181221
  2. SUCCINYLCHOLINE CHLORIDE. [Suspect]
     Active Substance: SUCCINYLCHOLINE CHLORIDE
     Indication: GENERAL ANAESTHESIA
     Route: 040
     Dates: start: 20181221, end: 20181221

REACTIONS (1)
  - Anaphylactic shock [Recovered/Resolved]

NARRATIVE: CASE EVENT DATE: 20181221
